FAERS Safety Report 10038615 (Version 1)
Quarter: 2014Q1

REPORT INFORMATION
  Report Type: Spontaneous
  Country: US (occurrence: None)
  Receive Date: 20140306
  Receipt Date: 20140306
  Transmission Date: 20141002
  Serious: Yes (Hospitalization)
  Sender: FDA-Public Use
  Company Number: 163-21880-13070112

PATIENT
  Age: 69 Year
  Sex: Male
  Weight: 91.63 kg

DRUGS (5)
  1. REVLIMID (LENALIDOMIDE) (25 MILLIGRAM, CAPSULES) [Suspect]
     Indication: PLASMA CELL MYELOMA
     Dosage: 25MG, 1 IN 1D, PO
     Route: 048
     Dates: start: 201107
  2. DECADRON (DEXAMETHASONE) [Concomitant]
  3. ATORVASTATIN (ATORVASTATIN) [Concomitant]
  4. OMEPRAZOLE (OMEPRAZOLE) [Concomitant]
  5. OXYMETAZOLINE (OXYMETAZOLINE) [Concomitant]

REACTIONS (2)
  - Pneumonia [None]
  - Laboratory test abnormal [None]
